FAERS Safety Report 5386771-9 (Version None)
Quarter: 2007Q3

REPORT INFORMATION
  Report Type: 
  Country: None (occurrence: None)
  Receive Date: 20070713
  Receipt Date: 20070703
  Transmission Date: 20080115
  Serious: Yes (Death, Other)
  Sender: FDA-Public Use
  Company Number: AU-PFIZER INC-2007034783

PATIENT
  Sex: Male

DRUGS (6)
  1. SUTENT [Suspect]
     Indication: METASTATIC RENAL CELL CARCINOMA
     Route: 048
  2. SUTENT [Suspect]
     Indication: NEOPLASM MALIGNANT
  3. AMIODARONE HCL [Suspect]
     Route: 048
  4. FENTANYL TRANSDERMAL SYSTEM [Concomitant]
  5. DEXAMETHASONE 0.5MG TAB [Concomitant]
     Dosage: DAILY DOSE:4MG
  6. FAMOTIDINE [Concomitant]
     Dosage: DAILY DOSE:20MG

REACTIONS (2)
  - CHEST PAIN [None]
  - MYOCARDIAL INFARCTION [None]
